FAERS Safety Report 9802955 (Version 1)
Quarter: 2014Q1

REPORT INFORMATION
  Report Type: Spontaneous
  Country: US (occurrence: None)
  Receive Date: 20140106
  Receipt Date: 20140106
  Transmission Date: 20141002
  Serious: Yes (Life-Threatening, Disabling)
  Sender: FDA-Public Use
  Company Number: None

PATIENT
  Age: 78 Year
  Sex: Female
  Weight: 70.31 kg

DRUGS (1)
  1. CELEXA [Suspect]

REACTIONS (5)
  - Diarrhoea [None]
  - Tremor [None]
  - Tremor [None]
  - Dyspnoea [None]
  - Asthenia [None]
